FAERS Safety Report 21029495 (Version 1)
Quarter: 2022Q2

REPORT INFORMATION
  Report Type: Spontaneous
  Country: US (occurrence: US)
  Receive Date: 20220630
  Receipt Date: 20220630
  Transmission Date: 20220721
  Serious: No
  Sender: FDA-Public Use
  Company Number: US-LEO Pharma-343640

PATIENT
  Age: 80 Year
  Sex: Female

DRUGS (2)
  1. ADBRY [Suspect]
     Active Substance: TRALOKINUMAB-LDRM
     Indication: Dermatitis atopic
     Dosage: DOSAGE : 4 SYRINGES (600 MG) UNDER THE SKIN ON DAY 1, THEN START MAINTENANCE DOSING AS DIRECTED ON D
     Dates: start: 20220614
  2. ADBRY [Suspect]
     Active Substance: TRALOKINUMAB-LDRM
     Indication: Dermatitis atopic
     Dosage: DOSAGE : 4 SYRINGES (600 MG) UNDER THE SKIN ON DAY 1, THEN START MAINTENANCE DOSING AS DIRECTED ON D

REACTIONS (1)
  - Rash [Not Recovered/Not Resolved]

NARRATIVE: CASE EVENT DATE: 20220614
